FAERS Safety Report 4297482-5 (Version None)
Quarter: 2004Q1

REPORT INFORMATION
  Report Type: 
  Country: None (occurrence: None)
  Receive Date: 20040218
  Receipt Date: 20040217
  Transmission Date: 20041129
  Serious: Yes (Other)
  Sender: FDA-Public Use
  Company Number: US-GLAXOSMITHKLINE-A0498550A

PATIENT
  Age: 7 Year
  Sex: Male

DRUGS (3)
  1. LAMICTAL [Suspect]
     Dosage: 125MG TWICE PER DAY
     Route: 048
  2. REMERON [Concomitant]
  3. VITAMIN B-12 [Concomitant]

REACTIONS (3)
  - AGGRESSION [None]
  - ELECTROENCEPHALOGRAM ABNORMAL [None]
  - MENTAL IMPAIRMENT [None]
